FAERS Safety Report 8925347 (Version 1)
Quarter: 2012Q4

REPORT INFORMATION
  Report Type: 
  Country: DE (occurrence: DE)
  Receive Date: 20121126
  Receipt Date: 20121126
  Transmission Date: 20130627
  Serious: Yes (Other)
  Sender: FDA-Public Use
  Company Number: DE-ROCHE-1155502

PATIENT
  Sex: Female
  Weight: 2.54 kg

DRUGS (4)
  1. VALIQUID [Suspect]
     Indication: BORDERLINE PERSONALITY DISORDER
     Route: 064
     Dates: start: 20110214, end: 20110513
  2. LORAZEPAM [Suspect]
     Indication: BORDERLINE PERSONALITY DISORDER
     Route: 064
     Dates: start: 20110214, end: 20110513
  3. HALOPERIDOL [Suspect]
     Indication: BORDERLINE PERSONALITY DISORDER
     Route: 064
     Dates: start: 20110214, end: 20110513
  4. LEVOMEPROMAZINE [Suspect]
     Indication: BORDERLINE PERSONALITY DISORDER
     Route: 064
     Dates: start: 20110214, end: 20110513

REACTIONS (4)
  - Neonatal respiratory distress syndrome [Recovered/Resolved]
  - Convulsion neonatal [Recovered/Resolved]
  - Hypotonia neonatal [Unknown]
  - Maternal exposure timing unspecified [Unknown]
